FAERS Safety Report 6112370-7 (Version None)
Quarter: 2009Q1

REPORT INFORMATION
  Report Type: 
  Country: None (occurrence: None)
  Receive Date: 20090311
  Receipt Date: 20090311
  Transmission Date: 20090719
  Serious: Yes (Other)
  Sender: FDA-Public Use
  Company Number: None

PATIENT
  Age: 76 Year
  Sex: Male
  Weight: 77.1115 kg

DRUGS (1)
  1. CIPROFLOXACIN HCL [Suspect]
     Indication: ABDOMINAL INFECTION
     Dosage: 500 MG TWICE DAILY BY MOUTH
     Dates: start: 20090228, end: 20090303

REACTIONS (5)
  - JOINT SWELLING [None]
  - MOBILITY DECREASED [None]
  - MUSCLE SWELLING [None]
  - OEDEMA PERIPHERAL [None]
  - PAIN IN EXTREMITY [None]
